FAERS Safety Report 16909868 (Version 1)
Quarter: 2019Q4

REPORT INFORMATION
  Report Type: Spontaneous
  Country: US (occurrence: US)
  Receive Date: 20191011
  Receipt Date: 20191011
  Transmission Date: 20200122
  Serious: No
  Sender: FDA-Public Use
  Company Number: None

PATIENT
  Age: 70 Year
  Sex: Female
  Weight: 59.4 kg

DRUGS (5)
  1. VYLEESI [Suspect]
     Active Substance: BREMELANOTIDE ACETATE
     Indication: LIBIDO DECREASED
     Dosage: ?          OTHER STRENGTH:MG/ML;QUANTITY:1 INJECTION(S);?
     Route: 058
     Dates: start: 20190920
  2. BIODENTICAL HORMONE REP [Concomitant]
  3. ANTIOXIDANTS [Concomitant]
  4. BIOIDENTICAL HORMONE REPLACEMENT [Concomitant]
  5. VITAMINS [Concomitant]
     Active Substance: VITAMINS

REACTIONS (10)
  - Vomiting [None]
  - Nausea [None]
  - Injection site pruritus [None]
  - Feeding disorder [None]
  - Hypertension [None]
  - Headache [None]
  - Injection site mass [None]
  - Injection site rash [None]
  - Injection site erythema [None]
  - Heart rate increased [None]

NARRATIVE: CASE EVENT DATE: 20190920
